FAERS Safety Report 5648158-0 (Version None)
Quarter: 2008Q1

REPORT INFORMATION
  Report Type: 
  Country: None (occurrence: None)
  Receive Date: 20080229
  Receipt Date: 20080214
  Transmission Date: 20080703
  Serious: Yes (Death, Hospitalization)
  Sender: FDA-Public Use
  Company Number: 8029920

PATIENT
  Age: 42 Year
  Sex: Female

DRUGS (2)
  1. KEPPRA [Suspect]
     Dosage: 1500 MG 2/D PO
     Route: 048
     Dates: start: 20070817, end: 20070926
  2. KEPPRA [Suspect]
     Dosage: 1750 MG 2/D PO
     Route: 048
     Dates: start: 20070927, end: 20080122

REACTIONS (3)
  - CONVULSION [None]
  - PYREXIA [None]
  - TOOTH ABSCESS [None]
